FAERS Safety Report 23801637 (Version 2)
Quarter: 2024Q2

REPORT INFORMATION
  Report Type: Spontaneous
  Country: FR (occurrence: None)
  Receive Date: 20240430
  Receipt Date: 20240530
  Transmission Date: 20240716
  Serious: Yes (Other)
  Sender: FDA-Public Use
  Company Number: FR-Benuvia Operations LLC.-BEN202404-000006

PATIENT
  Age: 40 Year
  Sex: Female

DRUGS (12)
  1. DRONABINOL [Suspect]
     Active Substance: DRONABINOL
     Indication: Pain
     Dates: start: 20210527, end: 20210603
  2. DRONABINOL [Suspect]
     Active Substance: DRONABINOL
     Dates: start: 20210603, end: 20210623
  3. DRONABINOL [Suspect]
     Active Substance: DRONABINOL
     Dates: start: 20210623
  4. DRONABINOL [Suspect]
     Active Substance: DRONABINOL
     Dates: end: 20210802
  5. VITAMIN D NOS [Concomitant]
     Active Substance: CHOLECALCIFEROL\ERGOCALCIFEROL
     Indication: Product used for unknown indication
     Dosage: UNKNOWN
  6. GABAPENTIN [Concomitant]
     Active Substance: GABAPENTIN
     Indication: Product used for unknown indication
     Dosage: UNKNOWN
  7. FESOTERODINE [Concomitant]
     Active Substance: FESOTERODINE
     Indication: Product used for unknown indication
     Dosage: UNKNOWN
  8. ISPAGHUL [Concomitant]
     Indication: Product used for unknown indication
     Dosage: UNKNOWN
  9. ACETAMINOPHEN [Concomitant]
     Active Substance: ACETAMINOPHEN
     Indication: Product used for unknown indication
     Dosage: UNKNOWN
  10. SILODOSIN [Concomitant]
     Active Substance: SILODOSIN
     Indication: Product used for unknown indication
     Dosage: UNKNOWN
  11. FINGOLIMOD [Concomitant]
     Active Substance: FINGOLIMOD
     Indication: Multiple sclerosis
     Dosage: UNKNOWN
     Dates: start: 20210719
  12. FINGOLIMOD [Concomitant]
     Active Substance: FINGOLIMOD
     Dosage: UNKNOWN
     Dates: start: 20210908

REACTIONS (6)
  - Pancreatitis acute [Recovered/Resolved]
  - Muscle spasms [Recovered/Resolved]
  - Toxicity to various agents [Unknown]
  - Hypotension [Recovered/Resolved]
  - Dizziness [Recovered/Resolved]
  - Product use in unapproved indication [Unknown]

NARRATIVE: CASE EVENT DATE: 20210712
